FAERS Safety Report 19993459 (Version 1)
Quarter: 2021Q4

REPORT INFORMATION
  Report Type: Spontaneous
  Country: IN (occurrence: IN)
  Receive Date: 20211026
  Receipt Date: 20211026
  Transmission Date: 20220303
  Serious: Yes (Other)
  Sender: FDA-Public Use
  Company Number: IN-LUPIN PHARMACEUTICALS INC.-2021-20418

PATIENT
  Age: 32 Year
  Sex: Male

DRUGS (19)
  1. METHYLPREDNISOLONE [Suspect]
     Active Substance: METHYLPREDNISOLONE
     Indication: COVID-19
     Dosage: UNK
     Route: 065
  2. SULFAMETHOXAZOLE AND TRIMETHOPRIM [Suspect]
     Active Substance: SULFAMETHOXAZOLE\TRIMETHOPRIM
     Indication: Evidence based treatment
     Dosage: 1 DOSAGE FORM, QD
     Route: 065
  3. SULFAMETHOXAZOLE AND TRIMETHOPRIM [Suspect]
     Active Substance: SULFAMETHOXAZOLE\TRIMETHOPRIM
     Indication: Acanthamoeba infection
  4. SULFAMETHOXAZOLE AND TRIMETHOPRIM [Suspect]
     Active Substance: SULFAMETHOXAZOLE\TRIMETHOPRIM
     Indication: Encephalitis
  5. AMPHOTERICIN B [Concomitant]
     Active Substance: AMPHOTERICIN B
     Indication: Evidence based treatment
     Dosage: 3 MILLIGRAM/KILOGRAM, QD
     Route: 065
  6. AMPHOTERICIN B [Concomitant]
     Active Substance: AMPHOTERICIN B
     Indication: Acanthamoeba infection
  7. AMPHOTERICIN B [Concomitant]
     Active Substance: AMPHOTERICIN B
     Indication: Encephalitis
  8. FLUCONAZOLE [Concomitant]
     Active Substance: FLUCONAZOLE
     Indication: Evidence based treatment
     Dosage: 800 MILLIGRAM, QD
     Route: 065
  9. FLUCONAZOLE [Concomitant]
     Active Substance: FLUCONAZOLE
     Indication: Acanthamoeba infection
  10. FLUCONAZOLE [Concomitant]
     Active Substance: FLUCONAZOLE
     Indication: Encephalitis
  11. ALBENDAZOLE [Concomitant]
     Active Substance: ALBENDAZOLE
     Indication: Evidence based treatment
     Dosage: 400 MILLIGRAM, QD
     Route: 065
  12. ALBENDAZOLE [Concomitant]
     Active Substance: ALBENDAZOLE
     Indication: Acanthamoeba infection
  13. ALBENDAZOLE [Concomitant]
     Active Substance: ALBENDAZOLE
     Indication: Encephalitis
  14. AZITHROMYCIN ANHYDROUS [Concomitant]
     Active Substance: AZITHROMYCIN ANHYDROUS
     Indication: Evidence based treatment
     Dosage: 500 MILLIGRAM, QD
     Route: 065
  15. AZITHROMYCIN ANHYDROUS [Concomitant]
     Active Substance: AZITHROMYCIN ANHYDROUS
     Indication: Acanthamoeba infection
  16. AZITHROMYCIN ANHYDROUS [Concomitant]
     Active Substance: AZITHROMYCIN ANHYDROUS
     Indication: Encephalitis
  17. RIFAMPIN [Concomitant]
     Active Substance: RIFAMPIN
     Indication: Evidence based treatment
     Dosage: 600 MILLIGRAM, QD
     Route: 065
  18. RIFAMPIN [Concomitant]
     Active Substance: RIFAMPIN
     Indication: Acanthamoeba infection
  19. RIFAMPIN [Concomitant]
     Active Substance: RIFAMPIN
     Indication: Encephalitis

REACTIONS (2)
  - Stevens-Johnson syndrome [Unknown]
  - Off label use [Unknown]
